FAERS Safety Report 7168076-9 (Version None)
Quarter: 2010Q4

REPORT INFORMATION
  Report Type: 
  Country: None (occurrence: None)
  Receive Date: 20101216
  Receipt Date: 20101203
  Transmission Date: 20110411
  Serious: Yes (Hospitalization, Disabling, Other)
  Sender: FDA-Public Use
  Company Number: PHHY2010US82979

PATIENT
  Sex: Male

DRUGS (1)
  1. EXJADE [Suspect]

REACTIONS (4)
  - ARTHRITIS INFECTIVE [None]
  - HIP ARTHROPLASTY [None]
  - MALAISE [None]
  - RASH [None]
